FAERS Safety Report 19407508 (Version 1)
Quarter: 2021Q2

REPORT INFORMATION
  Report Type: Report from Study
  Country: IE (occurrence: IE)
  Receive Date: 20210611
  Receipt Date: 20210611
  Transmission Date: 20210717
  Serious: Yes (Other)
  Sender: FDA-Public Use
  Company Number: IE-SEATTLE GENETICS-2021SGN03153

PATIENT
  Age: 19 Year
  Sex: Male

DRUGS (1)
  1. BRENTUXIMAB VEDOTIN?MPI [Suspect]
     Active Substance: BRENTUXIMAB VEDOTIN
     Indication: STEM CELL TRANSPLANT
     Dosage: 1.8 MG/KG, Q3WEEKS
     Route: 065

REACTIONS (1)
  - Malignant neoplasm progression [Unknown]
